FAERS Safety Report 7940420-1 (Version None)
Quarter: 2011Q4

REPORT INFORMATION
  Report Type: 
  Country: None (occurrence: None)
  Receive Date: 20111127
  Receipt Date: 20111124
  Transmission Date: 20120403
  Serious: Yes (Other)
  Sender: FDA-Public Use
  Company Number: IT-SANOFI-AVENTIS-2011SA077249

PATIENT
  Age: 78 Year
  Sex: Female

DRUGS (6)
  1. OXYGEN [Concomitant]
     Route: 055
  2. SPIRIVA [Concomitant]
     Route: 055
     Dates: start: 20110101, end: 20110530
  3. LUVION [Suspect]
     Indication: COR PULMONALE
     Route: 048
     Dates: start: 20110101, end: 20110530
  4. LASIX [Suspect]
     Indication: COR PULMONALE
     Route: 048
     Dates: start: 20110101
  5. ACETYLSALICYLIC ACID SRT [Concomitant]
     Indication: COR PULMONALE
     Route: 048
     Dates: start: 20110101, end: 20110530
  6. LANSOPRAZOLE [Concomitant]
     Route: 048
     Dates: start: 20110101, end: 20110530

REACTIONS (4)
  - CYANOSIS [None]
  - HYPOTENSION [None]
  - METABOLIC ALKALOSIS [None]
  - HYPONATRAEMIA [None]
